FAERS Safety Report 9173474 (Version 1)
Quarter: 2013Q1

REPORT INFORMATION
  Report Type: Spontaneous
  Country: US (occurrence: US)
  Receive Date: 20130320
  Receipt Date: 20130320
  Transmission Date: 20140127
  Serious: No
  Sender: FDA-Public Use
  Company Number: US-TEVA-392730USA

PATIENT
  Age: 64 Year
  Sex: Female
  Weight: 63.11 kg

DRUGS (5)
  1. PROAIR HFA [Suspect]
     Dosage: 2 PUFFS
     Route: 055
     Dates: start: 20130314, end: 20130314
  2. ROBITUSSIN [Concomitant]
     Route: 048
  3. METHYLPREDNISOLONE [Concomitant]
     Route: 048
  4. BENAZOTATE [Concomitant]
     Route: 048
  5. SYMBICORT [Concomitant]
     Route: 048

REACTIONS (4)
  - Tremor [Recovered/Resolved]
  - Sleep disorder [Recovered/Resolved]
  - Nausea [Not Recovered/Not Resolved]
  - Diarrhoea [Not Recovered/Not Resolved]
